FAERS Safety Report 9370526 (Version 2)
Quarter: 2013Q3

REPORT INFORMATION
  Report Type: Spontaneous
  Country: JP (occurrence: JP)
  Receive Date: 20130626
  Receipt Date: 20130705
  Transmission Date: 20140515
  Serious: Yes (Hospitalization)
  Sender: FDA-Public Use
  Company Number: JP-VIIV HEALTHCARE LIMITED-B0902159A

PATIENT
  Age: 42 Year
  Sex: Male

DRUGS (10)
  1. EPZICOM [Suspect]
     Indication: HIV INFECTION
     Dosage: 1IUAX PER DAY
     Route: 048
     Dates: start: 201005, end: 201104
  2. UNKNOWN DRUG [Concomitant]
     Route: 048
     Dates: start: 201001
  3. RITONAVIR [Concomitant]
     Route: 048
     Dates: start: 201001
  4. TRUVADA [Concomitant]
     Route: 048
     Dates: start: 201001
  5. CLINDAMYCIN [Concomitant]
     Route: 065
  6. FLUCONAZOLE [Concomitant]
     Route: 065
  7. UNKNOWN DRUG [Concomitant]
     Route: 065
  8. DARUNAVIR ETHANOLATE [Concomitant]
     Route: 065
     Dates: start: 201106
  9. RALTEGRAVIR POTASSIUM [Concomitant]
     Route: 065
     Dates: start: 201106
  10. CELSENTRI [Concomitant]
     Route: 065
     Dates: start: 201106

REACTIONS (5)
  - Loss of consciousness [Recovered/Resolved]
  - Craniocerebral injury [Recovered/Resolved]
  - AIDS dementia complex [Recovered/Resolved]
  - Memory impairment [Recovered/Resolved]
  - Drug tolerance [Recovered/Resolved]
